FAERS Safety Report 17828511 (Version 2)
Quarter: 2020Q2

REPORT INFORMATION
  Report Type: Spontaneous
  Country: US (occurrence: US)
  Receive Date: 20200527
  Receipt Date: 20200527
  Transmission Date: 20200714
  Serious: No
  Sender: FDA-Public Use
  Company Number: US-PFIZER INC-2020207406

PATIENT
  Age: 67 Year
  Sex: Female
  Weight: 74.84 kg

DRUGS (2)
  1. NICOTROL [Suspect]
     Active Substance: NICOTINE
     Dosage: 4 MG (ONE PUFF ABOUT THREE FOURTHS OF AN HOUR)
     Dates: start: 20200522
  2. NICOTROL [Suspect]
     Active Substance: NICOTINE
     Indication: SMOKING CESSATION THERAPY
     Dosage: UNK [1 INHALATION EVERY HOUR, GIVING HER 20 INHALATIONS A DAY]
     Dates: start: 20200522

REACTIONS (3)
  - Paraesthesia oral [Not Recovered/Not Resolved]
  - Intentional product misuse [Unknown]
  - Taste disorder [Unknown]

NARRATIVE: CASE EVENT DATE: 20200522
